FAERS Safety Report 4978722-3 (Version None)
Quarter: 2006Q2

REPORT INFORMATION
  Report Type: 
  Country: None (occurrence: None)
  Receive Date: 20060420
  Receipt Date: 20060123
  Transmission Date: 20061013
  Serious: Yes (Other)
  Sender: FDA-Public Use
  Company Number: US-MERCK-0601USA02674

PATIENT
  Age: 68 Year
  Sex: Male
  Weight: 68 kg

DRUGS (4)
  1. PROSCAR [Suspect]
     Indication: BENIGN PROSTATIC HYPERPLASIA
     Route: 048
     Dates: start: 20040501, end: 20060130
  2. FLOMAX (MORNIFLUMATE) [Concomitant]
     Indication: BLOOD PRESSURE
     Route: 065
  3. [THERAPY UNSPECIFIED] [Concomitant]
     Route: 065
  4. SAW PALMETTO [Concomitant]
     Route: 065

REACTIONS (5)
  - ERECTILE DYSFUNCTION [None]
  - LIBIDO DECREASED [None]
  - PROSTATE EXAMINATION ABNORMAL [None]
  - URINARY RETENTION [None]
  - URINARY TRACT INFECTION [None]
